FAERS Safety Report 7745598-0 (Version None)
Quarter: 2011Q3

REPORT INFORMATION
  Report Type: 
  Country: None (occurrence: None)
  Receive Date: 20110829
  Receipt Date: 20110817
  Transmission Date: 20111222
  Serious: Yes (Other)
  Sender: FDA-Public Use
  Company Number: WAES 1108USA02295

PATIENT
  Age: 62 Year
  Sex: Female

DRUGS (4)
  1. LIPITOR [Concomitant]
  2. PLAVIX [Concomitant]
  3. COZAAR [Suspect]
     Indication: ESSENTIAL HYPERTENSION
     Dosage: 50 M/DAILY
     Route: 048
     Dates: start: 20110722, end: 20110728
  4. DIOVAN [Suspect]
     Indication: ESSENTIAL HYPERTENSION
     Route: 048
     Dates: start: 20110801

REACTIONS (1)
  - DRUG ERUPTION [None]
